FAERS Safety Report 10412661 (Version 1)
Quarter: 2014Q3

REPORT INFORMATION
  Report Type: Spontaneous
  Country: FR (occurrence: None)
  Receive Date: 20140825
  Receipt Date: 20140825
  Transmission Date: 20150326
  Serious: Yes (Death)
  Sender: FDA-Public Use
  Company Number: 2014JUB00098

PATIENT
  Age: 77 Year
  Sex: Female

DRUGS (3)
  1. RITUXIMAB (RITUXIMAB) [Suspect]
     Active Substance: RITUXIMAB
     Indication: AUTOIMMUNE HAEMOLYTIC ANAEMIA
     Route: 042
  2. PREDNISONE (PREDNISONE) [Suspect]
     Active Substance: PREDNISONE
     Indication: AUTOIMMUNE HAEMOLYTIC ANAEMIA
  3. METHYLPREDNISOLONE (METHYLPREDNISOLONE) [Concomitant]
     Active Substance: METHYLPREDNISOLONE

REACTIONS (2)
  - Sepsis [None]
  - Pneumonia [None]
